FAERS Safety Report 7128091-8 (Version None)
Quarter: 2010Q4

REPORT INFORMATION
  Report Type: 
  Country: None (occurrence: None)
  Receive Date: 20101112
  Receipt Date: 20101103
  Transmission Date: 20110411
  Serious: Yes (Hospitalization, Disabling)
  Sender: FDA-Public Use
  Company Number: 2010SP026401

PATIENT
  Age: 29 Year
  Sex: Female
  Weight: 58.9676 kg

DRUGS (1)
  1. NUVARING [Suspect]
     Indication: CONTRACEPTION
     Dosage: ; VAG
     Route: 067
     Dates: start: 20071130, end: 20080424

REACTIONS (10)
  - ABORTION SPONTANEOUS [None]
  - ATELECTASIS [None]
  - BULLOUS LUNG DISEASE [None]
  - COGNITIVE DISORDER [None]
  - DEPRESSION [None]
  - DRUG EXPOSURE BEFORE PREGNANCY [None]
  - EMOTIONAL DISORDER [None]
  - MULTIPLE INJURIES [None]
  - PLEURAL EFFUSION [None]
  - PULMONARY EMBOLISM [None]
